FAERS Safety Report 7948994-1 (Version None)
Quarter: 2011Q4

REPORT INFORMATION
  Report Type: 
  Country: None (occurrence: None)
  Receive Date: 20111130
  Receipt Date: 20111125
  Transmission Date: 20120403
  Serious: Yes (Other)
  Sender: FDA-Public Use
  Company Number: DK-PFIZER INC-2011254693

PATIENT
  Age: 25 Year
  Sex: Female
  Weight: 88 kg

DRUGS (2)
  1. ZOLOFT [Suspect]
     Indication: TOURETTE'S DISORDER
     Dosage: 100 MG, 1X/DAY
     Dates: start: 20020213
  2. ESTRADIOL/GESTODENE [Concomitant]
     Indication: CONTRACEPTION
     Dosage: UNK
     Dates: start: 20040827

REACTIONS (1)
  - ALCOHOL INTOLERANCE [None]
